FAERS Safety Report 8278418-9 (Version None)
Quarter: 2012Q2

REPORT INFORMATION
  Report Type: 
  Country: None (occurrence: None)
  Receive Date: 20120412
  Receipt Date: 20110822
  Transmission Date: 20120825
  Serious: No
  Sender: FDA-Public Use
  Company Number: US-ASTRAZENECA-2011SE43125

PATIENT
  Age: 36 Year
  Sex: Male

DRUGS (2)
  1. NEXIUM [Suspect]
     Route: 048
  2. PRILOSEC [Suspect]
     Route: 048

REACTIONS (5)
  - FACE INJURY [None]
  - GAIT DISTURBANCE [None]
  - FALL [None]
  - DRUG EFFECT DECREASED [None]
  - PAIN [None]
